FAERS Safety Report 8162468-7 (Version None)
Quarter: 2012Q1

REPORT INFORMATION
  Report Type: 
  Country: None (occurrence: None)
  Receive Date: 20120224
  Receipt Date: 20120224
  Transmission Date: 20120608
  Serious: Yes (Other)
  Sender: FDA-Public Use
  Company Number: None

PATIENT
  Age: 37 Year
  Weight: 68.038 kg

DRUGS (1)
  1. PRISTIQ [Suspect]
     Indication: ANXIETY
     Route: 048
     Dates: start: 20110318, end: 20111212

REACTIONS (5)
  - CYST [None]
  - ACNE [None]
  - SCAR [None]
  - ACNE CYSTIC [None]
  - DRUG INEFFECTIVE [None]
